FAERS Safety Report 8229513-1 (Version None)
Quarter: 2012Q1

REPORT INFORMATION
  Report Type: 
  Country: None (occurrence: None)
  Receive Date: 20120322
  Receipt Date: 20120308
  Transmission Date: 20120608
  Serious: Yes (Hospitalization)
  Sender: FDA-Public Use
  Company Number: US-SANOFI-AVENTIS-2012SA013393

PATIENT
  Age: 70 Year
  Sex: Female

DRUGS (5)
  1. LANTUS [Suspect]
     Dosage: DOSE:2 UNIT(S)
     Route: 058
     Dates: start: 20120216, end: 20120216
  2. LANTUS [Suspect]
     Dosage: DOSE:1 UNIT(S)
     Route: 058
     Dates: start: 20120215, end: 20120215
  3. LANTUS [Suspect]
     Dosage: DOSE:3 UNIT(S)
     Route: 058
     Dates: start: 20120217, end: 20120217
  4. ALL OTHER THERAPEUTIC PRODUCTS [Concomitant]
  5. SOLOSTAR [Suspect]
     Dates: start: 20120215, end: 20120217

REACTIONS (10)
  - GAIT DISTURBANCE [None]
  - BACK PAIN [None]
  - ARTHRALGIA [None]
  - INFLUENZA LIKE ILLNESS [None]
  - PARALYSIS [None]
  - SINUS CONGESTION [None]
  - RHINORRHOEA [None]
  - FLATULENCE [None]
  - VISION BLURRED [None]
  - PAIN [None]
